FAERS Safety Report 9188177 (Version 2)
Quarter: 2012Q4

REPORT INFORMATION
  Report Type: 
  Country: US (occurrence: US)
  Receive Date: 20121126
  Receipt Date: 20121128
  Transmission Date: 20130627
  Serious: Yes (Other)
  Sender: FDA-Public Use
  Company Number: US-RB-046897-12

PATIENT
  Age: 20 Year
  Sex: Male

DRUGS (1)
  1. DELSYM ADULT ORANGE [Suspect]
     Indication: DRUG ABUSE
     Dosage: Patient drank 3 bottles in 2 days.
     Route: 048
     Dates: start: 20121111

REACTIONS (5)
  - Drug abuse [Not Recovered/Not Resolved]
  - Rash generalised [Not Recovered/Not Resolved]
  - Swelling [Not Recovered/Not Resolved]
  - Rash pruritic [Not Recovered/Not Resolved]
  - Rash erythematous [Not Recovered/Not Resolved]
